FAERS Safety Report 17581760 (Version 2)
Quarter: 2020Q2

REPORT INFORMATION
  Report Type: Spontaneous
  Country: PL (occurrence: PL)
  Receive Date: 20200325
  Receipt Date: 20200521
  Transmission Date: 20200713
  Serious: Yes (Other)
  Sender: FDA-Public Use
  Company Number: PL-BAYER-2020-047057

PATIENT
  Age: 40 Year
  Sex: Male

DRUGS (6)
  1. NEXAVAR [Suspect]
     Active Substance: SORAFENIB
     Indication: RENAL CANCER
     Dosage: DAILY DOSE 800 MG
     Dates: start: 201310
  2. NIVOLUMAB [Concomitant]
     Active Substance: NIVOLUMAB
     Dosage: 3 MG/KG MC. EVERY 2 WEEKS
     Dates: start: 201612
  3. EVEROLIMUS. [Concomitant]
     Active Substance: EVEROLIMUS
     Dosage: UNK
     Dates: start: 201510
  4. INTERFERON ALFA 2A [Concomitant]
     Active Substance: INTERFERON ALFA-2A
     Dosage: DOSE REDUCED
     Dates: end: 2013
  5. INTERFERON ALFA 2A [Concomitant]
     Active Substance: INTERFERON ALFA-2A
     Dosage: 9 MILLION UNITS SUBCUTANEOUSLY 3 TIMES A WEEK
     Dates: start: 201306
  6. NIVOLUMAB [Concomitant]
     Active Substance: NIVOLUMAB
     Dosage: 480 MG EVERY 4 WEEKS

REACTIONS (10)
  - Metastases to bone [None]
  - Pancreatic disorder [None]
  - Paresis [None]
  - Metastases to lung [None]
  - Bone lesion [None]
  - Hypertension [None]
  - Pain [None]
  - Renal cancer [None]
  - Metastases to central nervous system [None]
  - Palmar-plantar erythrodysaesthesia syndrome [None]

NARRATIVE: CASE EVENT DATE: 201901
